FAERS Safety Report 6494155-5 (Version None)
Quarter: 2009Q4

REPORT INFORMATION
  Report Type: 
  Country: None (occurrence: None)
  Receive Date: 20091214
  Receipt Date: 20090204
  Transmission Date: 20100525
  Serious: No
  Sender: FDA-Public Use
  Company Number: US-BRISTOL-MYERS SQUIBB COMPANY-14468326

PATIENT
  Age: 38 Year
  Sex: Female

DRUGS (3)
  1. ABILIFY [Suspect]
     Indication: DEPRESSION
     Dosage: STARTED AS 10MG/D ON 16JUN08 INCREASED TO 15MG/D ON 14JUL08 AND REDUCED TO 10MG/D ON 7JAN09
     Route: 048
     Dates: start: 20080616
  2. ABILIFY [Suspect]
     Indication: BIPOLAR DISORDER
     Dosage: STARTED AS 10MG/D ON 16JUN08 INCREASED TO 15MG/D ON 14JUL08 AND REDUCED TO 10MG/D ON 7JAN09
     Route: 048
     Dates: start: 20080616
  3. ANTIDEPRESSANT [Concomitant]

REACTIONS (1)
  - HALLUCINATION, AUDITORY [None]
